FAERS Safety Report 25833800 (Version 1)
Quarter: 2025Q3

REPORT INFORMATION
  Report Type: Spontaneous
  Country: BR (occurrence: BR)
  Receive Date: 20250923
  Receipt Date: 20250923
  Transmission Date: 20251020
  Serious: Yes (Hospitalization)
  Sender: BIOGEN
  Company Number: BR-BIOGEN-2025BI01324366

PATIENT
  Sex: Female
  Weight: 67.5 kg

DRUGS (2)
  1. TECFIDERA [Suspect]
     Active Substance: DIMETHYL FUMARATE
     Indication: Multiple sclerosis
     Route: 050
     Dates: start: 20200130, end: 20250730
  2. NACTALI [Concomitant]
     Indication: Contraception
     Route: 050

REACTIONS (5)
  - Treatment failure [Recovered/Resolved]
  - Hypoaesthesia [Recovered/Resolved]
  - Optic neuritis [Recovered/Resolved]
  - Paraesthesia [Recovered/Resolved]
  - Prescription drug used without a prescription [Unknown]

NARRATIVE: CASE EVENT DATE: 20250101
